FAERS Safety Report 16569728 (Version 1)
Quarter: 2019Q3

REPORT INFORMATION
  Report Type: Spontaneous
  Country: US (occurrence: US)
  Receive Date: 20190715
  Receipt Date: 20190715
  Transmission Date: 20191004
  Serious: No
  Sender: FDA-Public Use
  Company Number: US-ZYDUS-038181

PATIENT
  Sex: Female

DRUGS (1)
  1. METOPROLOL/METOPROLOL FUMARATE/METOPROLOL SUCCINATE/METOPROLOL TARTRATE [Suspect]
     Active Substance: METOPROLOL
     Indication: PRODUCT USED FOR UNKNOWN INDICATION
     Route: 065
     Dates: start: 2019, end: 2019

REACTIONS (4)
  - Dyspepsia [Unknown]
  - Gastrooesophageal reflux disease [Unknown]
  - Abdominal discomfort [Unknown]
  - Nausea [Unknown]

NARRATIVE: CASE EVENT DATE: 2019
